FAERS Safety Report 8398600-X (Version None)
Quarter: 2012Q2

REPORT INFORMATION
  Report Type: 
  Country: None (occurrence: None)
  Receive Date: 20120531
  Receipt Date: 20120523
  Transmission Date: 20120825
  Serious: Yes (Other)
  Sender: FDA-Public Use
  Company Number: US-BRISTOL-MYERS SQUIBB COMPANY-16619322

PATIENT
  Sex: Female

DRUGS (2)
  1. METFORMIN HCL [Suspect]
  2. VICTOZA [Suspect]

REACTIONS (6)
  - VOMITING PROJECTILE [None]
  - ASTHENIA [None]
  - BLOOD GLUCOSE DECREASED [None]
  - HEADACHE [None]
  - OROPHARYNGEAL PAIN [None]
  - DYSGEUSIA [None]
